FAERS Safety Report 9736358 (Version 2)
Quarter: 2013Q4

REPORT INFORMATION
  Report Type: Report from Study
  Country: DE (occurrence: DE)
  Receive Date: 20131206
  Receipt Date: 20131210
  Transmission Date: 20140711
  Serious: Yes (Disabling)
  Sender: FDA-Public Use
  Company Number: DE-ROCHE-1310617

PATIENT
  Age: 71 Year
  Sex: Female
  Weight: 51 kg

DRUGS (3)
  1. BEVACIZUMAB [Suspect]
     Indication: OVARIAN CANCER
     Dosage: LAST DOSE PRIOR TO SAE 31/OCT/2013
     Route: 042
     Dates: start: 20121209
  2. CARBOPLATIN [Suspect]
     Indication: OVARIAN CANCER
     Dosage: LAST DOSE PRIOR TO SAE 03/APR/2013
     Route: 042
     Dates: start: 20121219
  3. PACLITAXEL [Suspect]
     Indication: OVARIAN CANCER
     Dosage: LAST DOSE PRIOR TO SAE 03/APR/2013
     Route: 042
     Dates: start: 20121219

REACTIONS (1)
  - Gastrooesophageal reflux disease [Not Recovered/Not Resolved]
